FAERS Safety Report 7992573-7 (Version None)
Quarter: 2011Q4

REPORT INFORMATION
  Report Type: 
  Country: None (occurrence: None)
  Receive Date: 20111219
  Receipt Date: 20111215
  Transmission Date: 20120403
  Serious: Yes (Death, Hospitalization)
  Sender: FDA-Public Use
  Company Number: US-B.I. PHARMACEUTICALS,INC./RIDGEFIELD-2011-BP-27369BP

PATIENT
  Age: 84 Year
  Sex: Male

DRUGS (5)
  1. PRADAXA [Suspect]
     Indication: ATRIAL FIBRILLATION
     Dosage: 300 MG
     Route: 048
  2. PRILOSEC [Concomitant]
  3. SEROQUEL [Concomitant]
     Dosage: 10 MG
  4. TAMSULOSIN HCL [Concomitant]
     Indication: PROSTATE CANCER
  5. PIOGLITAZONE [Concomitant]
     Dosage: 45 MG

REACTIONS (1)
  - CEREBRAL HAEMORRHAGE [None]
